FAERS Safety Report 9972129 (Version 1)
Quarter: 2014Q1

REPORT INFORMATION
  Report Type: Spontaneous
  Country: US (occurrence: None)
  Receive Date: 20140305
  Receipt Date: 20140305
  Transmission Date: 20141002
  Serious: Yes (Other)
  Sender: FDA-Public Use
  Company Number: None

PATIENT
  Age: 20 Year
  Sex: Female
  Weight: 68.95 kg

DRUGS (1)
  1. LORYNA [Suspect]
     Indication: ACNE
     Dosage: 1, ONCE DAILY, TAKEN BY MOUTH
     Route: 048
     Dates: start: 20140215, end: 20140302

REACTIONS (11)
  - Mood swings [None]
  - Depression [None]
  - Suicidal ideation [None]
  - Condition aggravated [None]
  - Irritability [None]
  - Fatigue [None]
  - Feeling abnormal [None]
  - Emotional disorder [None]
  - Activities of daily living impaired [None]
  - Hypoaesthesia [None]
  - Depressed mood [None]
